FAERS Safety Report 15060672 (Version 1)
Quarter: 2018Q2

REPORT INFORMATION
  Report Type: Spontaneous
  Country: ES (occurrence: ES)
  Receive Date: 20180625
  Receipt Date: 20180625
  Transmission Date: 20180711
  Serious: Yes (Other)
  Sender: FDA-Public Use
  Company Number: ES-PFIZER INC-2018251617

PATIENT
  Age: 40 Year
  Sex: Female

DRUGS (3)
  1. PROCARBAZINE HYDROCHLORIDE [Suspect]
     Active Substance: PROCARBAZINE HYDROCHLORIDE
     Indication: ANAPLASTIC ASTROCYTOMA
     Dosage: 1250 MG, CYCLIC
     Route: 048
     Dates: start: 20171111, end: 20171202
  2. LOMUSTINE. [Suspect]
     Active Substance: LOMUSTINE
     Indication: ANAPLASTIC ASTROCYTOMA
     Dosage: 160 MG, CYCLIC
     Route: 048
     Dates: start: 20171103, end: 20171229
  3. VINCRISTINE SULFATE. [Suspect]
     Active Substance: VINCRISTINE SULFATE
     Indication: ANAPLASTIC ASTROCYTOMA
     Dosage: UNK, CYCLIC
     Route: 042
     Dates: start: 20171111, end: 20180127

REACTIONS (2)
  - Hypertransaminasaemia [Recovered/Resolved]
  - Thrombocytopenia [Recovering/Resolving]

NARRATIVE: CASE EVENT DATE: 20180121
